FAERS Safety Report 4726186-7 (Version None)
Quarter: 2005Q3

REPORT INFORMATION
  Report Type: 
  Country: None (occurrence: None)
  Receive Date: 20050725
  Receipt Date: 20050708
  Transmission Date: 20060218
  Serious: Yes (Hospitalization)
  Sender: FDA-Public Use
  Company Number: RENA-10964

PATIENT
  Age: 59 Year
  Sex: Male
  Weight: 54 kg

DRUGS (18)
  1. RENAGEL [Suspect]
     Indication: HYPERPHOSPHATAEMIA
     Dosage: 0.5 G TID PO
     Route: 048
     Dates: start: 20040813, end: 20041101
  2. RENAGEL [Suspect]
     Indication: HYPERPHOSPHATAEMIA
     Dosage: 1.5 G TID PO
     Route: 048
     Dates: start: 20030723, end: 20040225
  3. CALCIUM GLUCONATE [Concomitant]
  4. AMLODIPINE BESYLATE [Concomitant]
  5. CALCITRIOL [Concomitant]
  6. ALOSENN [Concomitant]
  7. PURSENNID [Concomitant]
  8. DOXAZOSIN MESYLATE [Concomitant]
  9. SOLCOSERYL [Concomitant]
  10. OMEPRAZOLE [Concomitant]
  11. ZOLPIDEM TARTRATE [Concomitant]
  12. TSUMURA CHOUTOUSAN [Concomitant]
  13. PHYSIO 140 (SODIUM CHLORIDE, POTASSIUM CHLORIDE, GLUCOSE, CALCIUM CHLO [Concomitant]
  14. SESDEN [Concomitant]
  15. ATARAX [Concomitant]
  16. PHELLOBERIN (CLIOQUINOL, CARMELLOSE SODIUM, BERBERINE HYDROCHLORIDE) [Concomitant]
  17. BIOFEMRIN R [Concomitant]
  18. LOPEMIN [Concomitant]

REACTIONS (24)
  - ALANINE AMINOTRANSFERASE INCREASED [None]
  - ANOREXIA [None]
  - ASPARTATE AMINOTRANSFERASE INCREASED [None]
  - BLOOD CHOLESTEROL DECREASED [None]
  - BLOOD CREATINE PHOSPHOKINASE INCREASED [None]
  - BLOOD PRESSURE INCREASED [None]
  - CONSTIPATION [None]
  - DIARRHOEA [None]
  - FATIGUE [None]
  - GAMMA-GLUTAMYLTRANSFERASE INCREASED [None]
  - GASTRIC ULCER HAEMORRHAGE [None]
  - HAEMODIALYSIS [None]
  - HELICOBACTER PYLORI IDENTIFICATION TEST [None]
  - HEPATOCELLULAR DAMAGE [None]
  - INSOMNIA [None]
  - ISCHAEMIA [None]
  - MALAISE [None]
  - MUSCULAR WEAKNESS [None]
  - MYALGIA [None]
  - NASOPHARYNGITIS [None]
  - PAIN IN EXTREMITY [None]
  - PERIPHERAL CIRCULATORY FAILURE [None]
  - PRURITUS [None]
  - SHOULDER PAIN [None]
